FAERS Safety Report 7933703-2 (Version None)
Quarter: 2011Q4

REPORT INFORMATION
  Report Type: 
  Country: None (occurrence: None)
  Receive Date: 20111122
  Receipt Date: 20111110
  Transmission Date: 20120403
  Serious: Yes (Disabling, Other)
  Sender: FDA-Public Use
  Company Number: PHEH2011US08491

PATIENT
  Sex: Male

DRUGS (2)
  1. LEXAPRO [Concomitant]
  2. DIOVAN HCT [Suspect]
     Indication: HYPERTENSION
     Dosage: 1 DF, (320/12.5MG) ONCE DAILY

REACTIONS (11)
  - INTERVERTEBRAL DISC DISORDER [None]
  - ACCIDENT [None]
  - MUSCLE INJURY [None]
  - NERVE INJURY [None]
  - TOOTH DISORDER [None]
  - CONVULSION [None]
  - COMPLEX REGIONAL PAIN SYNDROME [None]
  - MEMORY IMPAIRMENT [None]
  - CERVICOBRACHIAL SYNDROME [None]
  - PARALYSIS [None]
  - HEAD INJURY [None]
